FAERS Safety Report 18986849 (Version 1)
Quarter: 2021Q1

REPORT INFORMATION
  Report Type: Report from Study
  Country: FR (occurrence: FR)
  Receive Date: 20210309
  Receipt Date: 20210309
  Transmission Date: 20210420
  Serious: Yes (Other)
  Sender: FDA-Public Use
  Company Number: NVSC2020FR281454

PATIENT
  Sex: Female
  Weight: 80 kg

DRUGS (8)
  1. ZOPICLONE [Concomitant]
     Active Substance: ZOPICLONE
     Indication: PRODUCT USED FOR UNKNOWN INDICATION
     Dosage: UNK
     Route: 065
  2. FULVESTRANT. [Concomitant]
     Active Substance: FULVESTRANT
     Indication: PRODUCT USED FOR UNKNOWN INDICATION
     Dosage: 500 MG, QMO
     Route: 030
  3. MIANSERIN [Concomitant]
     Active Substance: MIANSERIN
     Indication: DEPRESSION
     Dosage: UNK
     Route: 048
  4. BROMAZEPAM [Concomitant]
     Active Substance: BROMAZEPAM
     Indication: ANXIETY
     Dosage: UNK
     Route: 048
  5. ALPRAZOLAM. [Concomitant]
     Active Substance: ALPRAZOLAM
     Indication: PRODUCT USED FOR UNKNOWN INDICATION
     Dosage: UNK
     Route: 065
  6. BYL719 [Suspect]
     Active Substance: ALPELISIB
     Dosage: 200 MG, QD (FILM COATED TABLET)
     Route: 065
     Dates: start: 20201114, end: 20210204
  7. TRAMADOL. [Concomitant]
     Active Substance: TRAMADOL
     Indication: PRODUCT USED FOR UNKNOWN INDICATION
     Dosage: UNK (ON DEMAND)
     Route: 065
  8. BYL719 [Suspect]
     Active Substance: ALPELISIB
     Indication: BREAST CANCER METASTATIC
     Dosage: 300 MG, QD (FILM COATED TABLET)
     Route: 065
     Dates: start: 20200814, end: 20201101

REACTIONS (4)
  - Breast cancer metastatic [Unknown]
  - Blood glucose abnormal [Unknown]
  - Type 2 diabetes mellitus [Recovering/Resolving]
  - Malignant neoplasm progression [Unknown]

NARRATIVE: CASE EVENT DATE: 202011
